FAERS Safety Report 5675695-5 (Version None)
Quarter: 2008Q1

REPORT INFORMATION
  Report Type: 
  Country: None (occurrence: None)
  Receive Date: 20080317
  Receipt Date: 20080303
  Transmission Date: 20080703
  Serious: Yes (Life-Threatening)
  Sender: FDA-Public Use
  Company Number: 100#08#2008-01344

PATIENT
  Age: 29 Year
  Sex: Male

DRUGS (7)
  1. LITHIUM CARBONATE [Suspect]
     Indication: BIPOLAR DISORDER
     Dosage: 1 200 MG
  2. FLUDROCORTISONE ACETATE [Suspect]
     Indication: ADDISON'S DISEASE
     Dosage: 0.15 MG; } 0.2 MG
  3. PERICYAZINE (PERICYAZINE) [Concomitant]
  4. LORAZEPAM [Concomitant]
  5. HYDROCORTISONE [Concomitant]
  6. PREDNISONE TAB [Concomitant]
  7. HALOPERIDOL [Concomitant]

REACTIONS (12)
  - ABDOMINAL DISCOMFORT [None]
  - ADRENOCORTICAL INSUFFICIENCY ACUTE [None]
  - ANOREXIA [None]
  - ASTHENIA [None]
  - DRUG INTERACTION [None]
  - GRAND MAL CONVULSION [None]
  - HYPOMANIA [None]
  - LEUKOCYTOSIS [None]
  - LOSS OF CONSCIOUSNESS [None]
  - NAUSEA [None]
  - THERAPEUTIC RESPONSE DECREASED [None]
  - VOMITING [None]
